APPROVED DRUG PRODUCT: TONOCARD
Active Ingredient: TOCAINIDE HYDROCHLORIDE
Strength: 400MG
Dosage Form/Route: TABLET;ORAL
Application: N018257 | Product #001
Applicant: ASTRAZENECA PHARMACEUTICALS LP
Approved: Nov 9, 1984 | RLD: No | RS: No | Type: DISCN